FAERS Safety Report 6329893-8 (Version None)
Quarter: 2009Q3

REPORT INFORMATION
  Report Type: 
  Country: None (occurrence: None)
  Receive Date: 20090825
  Receipt Date: 20090813
  Transmission Date: 20100115
  Serious: No
  Sender: FDA-Public Use
  Company Number: 006496

PATIENT
  Age: 89 Year
  Sex: Female

DRUGS (2)
  1. PLETAL [Suspect]
     Indication: LACUNAR INFARCTION
     Dosage: ORAL
     Route: 048
  2. ASPIRIN [Concomitant]

REACTIONS (3)
  - DISEASE RECURRENCE [None]
  - LACUNAR INFARCTION [None]
  - THALAMUS HAEMORRHAGE [None]
